FAERS Safety Report 5865545-6 (Version None)
Quarter: 2008Q3

REPORT INFORMATION
  Report Type: 
  Country: None (occurrence: None)
  Receive Date: 20080829
  Receipt Date: 20080808
  Transmission Date: 20090109
  Serious: No
  Sender: FDA-Public Use
  Company Number: US-ABBOTT-08P-163-0469463-00

PATIENT
  Sex: Male

DRUGS (9)
  1. SIMCOR [Suspect]
     Indication: DRUG USE FOR UNKNOWN INDICATION
     Dates: start: 20080601
  2. CLOPIDOGREL [Concomitant]
     Indication: DRUG USE FOR UNKNOWN INDICATION
  3. ATENOLOL [Concomitant]
     Indication: DRUG USE FOR UNKNOWN INDICATION
  4. LEVOTHYROXINE SODIUM [Concomitant]
     Indication: DRUG USE FOR UNKNOWN INDICATION
  5. MORNIFLUMATE [Concomitant]
     Indication: DRUG USE FOR UNKNOWN INDICATION
  6. VALACYCLOVIR [Concomitant]
     Indication: DRUG USE FOR UNKNOWN INDICATION
  7. LANESTA [Concomitant]
     Indication: DRUG USE FOR UNKNOWN INDICATION
  8. ACETYLSALICYLIC ACID SRT [Concomitant]
     Indication: DRUG USE FOR UNKNOWN INDICATION
  9. M.V.I. [Concomitant]
     Indication: DRUG USE FOR UNKNOWN INDICATION

REACTIONS (3)
  - ERYTHEMA [None]
  - FLUSHING [None]
  - FORMICATION [None]
